FAERS Safety Report 9024509 (Version 1)
Quarter: 2013Q1

REPORT INFORMATION
  Report Type: Spontaneous
  Country: ES (occurrence: None)
  Receive Date: 20130104
  Receipt Date: 20130104
  Transmission Date: 20140127
  Serious: Yes (Hospitalization)
  Sender: FDA-Public Use
  Company Number: AG-2012-2103

PATIENT
  Age: 82 Year
  Sex: Male
  Weight: 74 kg

DRUGS (6)
  1. CHLORAMBUCIL [Suspect]
     Indication: CHRONIC LYMPHOCYTIC LEUKAEMIA
     Route: 048
     Dates: start: 20111220, end: 20120227
  2. OBINUTUZUMAB [Suspect]
     Indication: CHRONIC LYMPHOCYTIC LEUKAEMIA
     Route: 042
     Dates: start: 20111220, end: 20120227
  3. ENALAPRIL [Concomitant]
  4. INDAPAMIDE (INDAPAMIDE) [Concomitant]
  5. ALLOPURINOL [Concomitant]
  6. METHYLPREDNISOLONE (METHYLPREDNISOLONE) [Concomitant]

REACTIONS (4)
  - Pneumonia [None]
  - Respiratory failure [None]
  - Citrobacter test positive [None]
  - Fungal test positive [None]
